FAERS Safety Report 4541276-X (Version None)
Quarter: 2004Q4

REPORT INFORMATION
  Report Type: 
  Country: None (occurrence: None)
  Receive Date: 20041228
  Receipt Date: 20041214
  Transmission Date: 20050328
  Serious: No
  Sender: FDA-Public Use
  Company Number: T04-USA-07232-01

PATIENT
  Age: 83 Year
  Sex: Male
  Weight: 81.6475 kg

DRUGS (13)
  1. LEXAPRO [Suspect]
     Indication: DEPRESSION
     Dosage: 10 MG QD PO
     Route: 048
     Dates: start: 20041013, end: 20041020
  2. PREVACID [Concomitant]
  3. DETROL - SLOW RELEASE (TOLTERODINE L-TARTRATE) [Concomitant]
  4. DIGOXIN [Concomitant]
  5. LASIX [Concomitant]
  6. COUMADIN [Concomitant]
  7. LIPITOR [Concomitant]
  8. LISINOPRIL [Concomitant]
  9. POTASSIUM [Concomitant]
  10. REGLAN [Concomitant]
  11. PREDNISONE [Concomitant]
  12. CALCIUM WITH VITAMIN D [Concomitant]
  13. TYLENOL [Concomitant]

REACTIONS (13)
  - ABASIA [None]
  - ASTHENIA [None]
  - BLOOD POTASSIUM INCREASED [None]
  - BLOOD UREA INCREASED [None]
  - CONDITION AGGRAVATED [None]
  - DEHYDRATION [None]
  - DYSPEPSIA [None]
  - DYSSTASIA [None]
  - GASTROOESOPHAGEAL REFLUX DISEASE [None]
  - HYPERTENSION [None]
  - INSOMNIA [None]
  - MARKEDLY REDUCED DIETARY INTAKE [None]
  - ORTHOSTATIC HYPOTENSION [None]
